FAERS Safety Report 4504045-2 (Version None)
Quarter: 2004Q4

REPORT INFORMATION
  Report Type: 
  Country: None (occurrence: None)
  Receive Date: 20041115
  Receipt Date: 20041101
  Transmission Date: 20050328
  Serious: Yes (Death, Other)
  Sender: FDA-Public Use
  Company Number: 04-08-1210

PATIENT
  Age: 44 Year
  Sex: Female

DRUGS (4)
  1. CLOZAPINE [Suspect]
     Indication: SCHIZOAFFECTIVE DISORDER
     Dosage: 350 QD ORAL
     Route: 048
     Dates: start: 19980401, end: 20040701
  2. ABILIFY [Suspect]
     Indication: SCHIZOAFFECTIVE DISORDER
     Dosage: 30 MG QD
     Dates: start: 20030801, end: 20040701
  3. LEXAPRO [Concomitant]
  4. KLONOPIN [Concomitant]

REACTIONS (5)
  - CONVULSION [None]
  - DELUSION [None]
  - DRUG LEVEL INCREASED [None]
  - PARANOIA [None]
  - TREATMENT NONCOMPLIANCE [None]
